FAERS Safety Report 19361726 (Version 1)
Quarter: 2021Q2

REPORT INFORMATION
  Report Type: Report from Study
  Country: None (occurrence: US)
  Receive Date: 20210602
  Receipt Date: 20210602
  Transmission Date: 20210717
  Serious: No
  Sender: FDA-Public Use
  Company Number: US-MDD US OPERATIONS-USW202006-001190

PATIENT
  Sex: Male

DRUGS (4)
  1. MULTIVITAMIN [Concomitant]
     Active Substance: VITAMINS
     Dosage: 50 PLUS
  2. MAGNESIUM [Concomitant]
     Active Substance: MAGNESIUM
  3. APOKYN [Suspect]
     Active Substance: APOMORPHINE HYDROCHLORIDE
     Indication: PARKINSON^S DISEASE
     Dosage: 3ML CARTRIDGE 1 EA CART ; UP TO 0.2 ML/DOSE UNDER THE SKIN DO NOT EXCEED FOUR DOSES PER DAY
     Route: 058
  4. TYLENOL [Concomitant]
     Active Substance: ACETAMINOPHEN

REACTIONS (1)
  - Malaise [Unknown]
